FAERS Safety Report 24166913 (Version 1)
Quarter: 2024Q3

REPORT INFORMATION
  Report Type: Spontaneous
  Country: US (occurrence: US)
  Receive Date: 20240802
  Receipt Date: 20240802
  Transmission Date: 20241017
  Serious: No
  Sender: ENDO
  Company Number: ENDB23-03515

PATIENT
  Sex: Male
  Weight: 81.633 kg

DRUGS (3)
  1. EDEX [Suspect]
     Active Substance: ALPROSTADIL
     Indication: Erectile dysfunction
     Dosage: 20 MICROGRAM, UNKNOWN
     Route: 065
     Dates: start: 2021
  2. PRAVASTATIN [Concomitant]
     Active Substance: PRAVASTATIN
     Indication: Blood cholesterol abnormal
     Dosage: 40 MILLIGRAM, UNKNOWN (STARTED THREE YEARS AGO)
     Route: 065
     Dates: start: 2020
  3. DILTIAZEM [Concomitant]
     Active Substance: DILTIAZEM
     Indication: Blood pressure abnormal
     Dosage: 360 MILLIGRAM, UNKNOWN (STARTED THREE YEARS AGO)
     Route: 065
     Dates: start: 2020

REACTIONS (2)
  - Wound [Unknown]
  - Needle issue [None]

NARRATIVE: CASE EVENT DATE: 20230101
